FAERS Safety Report 24365279 (Version 2)
Quarter: 2024Q4

REPORT INFORMATION
  Report Type: Spontaneous
  Country: IT (occurrence: IT)
  Receive Date: 20240926
  Receipt Date: 20241007
  Transmission Date: 20250114
  Serious: Yes (Other)
  Sender: JUBILANT
  Company Number: IT-MLMSERVICE-20240910-PI188778-00256-1

PATIENT
  Age: 47 Year
  Sex: Male
  Weight: 68 kg

DRUGS (2)
  1. PANTOPRAZOLE SODIUM [Suspect]
     Active Substance: PANTOPRAZOLE SODIUM
     Indication: Gastritis
     Dosage: 20 MG, ONCE PER DAY (FOR APPROXIMATELY EIGHT YEARS)
     Route: 048
  2. PROBIOTICS NOS [Suspect]
     Active Substance: PROBIOTICS NOS
     Indication: Probiotic therapy
     Dosage: UNK, UNK

REACTIONS (5)
  - Brain fog [Recovered/Resolved]
  - Abdominal distension [Recovered/Resolved]
  - Condition aggravated [Recovered/Resolved]
  - Flatulence [Recovered/Resolved]
  - Gastrointestinal microorganism overgrowth [Recovered/Resolved]
